FAERS Safety Report 10206499 (Version 1)
Quarter: 2014Q2

REPORT INFORMATION
  Report Type: Spontaneous
  Country: DK (occurrence: DK)
  Receive Date: 20140530
  Receipt Date: 20140530
  Transmission Date: 20141212
  Serious: Yes (Hospitalization, Other)
  Sender: FDA-Public Use
  Company Number: DK-009507513-1405DNK011908

PATIENT
  Age: 21 Year
  Sex: Female

DRUGS (1)
  1. GRACIAL [Suspect]
     Indication: CONTRACEPTION
     Route: 048

REACTIONS (9)
  - Intracranial venous sinus thrombosis [Recovered/Resolved with Sequelae]
  - Headache [Recovered/Resolved]
  - Nausea [Recovered/Resolved]
  - Vomiting [Recovered/Resolved]
  - Headache [Not Recovered/Not Resolved]
  - Fatigue [Not Recovered/Not Resolved]
  - Disturbance in attention [Not Recovered/Not Resolved]
  - Amnesia [Not Recovered/Not Resolved]
  - Aphasia [Not Recovered/Not Resolved]
